FAERS Safety Report 7141084-X (Version None)
Quarter: 2010Q4

REPORT INFORMATION
  Report Type: 
  Country: None (occurrence: None)
  Receive Date: 20101207
  Receipt Date: 20101122
  Transmission Date: 20110411
  Serious: Yes (Hospitalization)
  Sender: FDA-Public Use
  Company Number: US-JNJFOC-20101201468

PATIENT
  Age: 29 Year
  Sex: Female

DRUGS (2)
  1. NUCYNTA [Suspect]
     Indication: POSTOPERATIVE ANALGESIA
     Route: 048
  2. INSULIN [Suspect]
     Indication: DIABETES MELLITUS
     Route: 058

REACTIONS (1)
  - BLOOD GLUCOSE DECREASED [None]
